FAERS Safety Report 17713337 (Version 3)
Quarter: 2020Q2

REPORT INFORMATION
  Report Type: Spontaneous
  Country: DK (occurrence: DK)
  Receive Date: 20200427
  Receipt Date: 20200624
  Transmission Date: 20200714
  Serious: Yes (Hospitalization)
  Sender: FDA-Public Use
  Company Number: DK-009507513-2004DNK006586

PATIENT
  Age: 75 Year
  Sex: Female

DRUGS (25)
  1. ATENOLOL. [Suspect]
     Active Substance: ATENOLOL
     Dosage: 50 MILLIGRAM, QD, 50 MG, 1X/DAY
     Route: 048
     Dates: start: 20200408
  2. ELIQUIS [Concomitant]
     Active Substance: APIXABAN
     Indication: THROMBOSIS PROPHYLAXIS
     Dosage: 5 MILLIGRAM, QD, STRENGTH: 2.5 MG
     Route: 048
     Dates: start: 20200327
  3. PANTOPRAZOLE [Concomitant]
     Active Substance: PANTOPRAZOLE
     Indication: PROPHYLAXIS AGAINST GASTROINTESTINAL ULCER
     Dosage: 20 MILLIGRAM, QD
     Route: 048
     Dates: start: 20170603
  4. DULOXETINE HYDROCHLORIDE. [Concomitant]
     Active Substance: DULOXETINE HYDROCHLORIDE
     Indication: DEPRESSION
     Dosage: 30 MILLIGRAM, QD,
     Route: 048
     Dates: start: 20190826
  5. METOPROLOL SUCCINATE. [Suspect]
     Active Substance: METOPROLOL SUCCINATE
     Indication: HYPERTENSION
     Dosage: 100 MILLIGRAM, QD, 100 MG, 1X/DAY
     Route: 048
     Dates: start: 20200326, end: 20200408
  6. TOILAX [Concomitant]
     Active Substance: BISACODYL
     Indication: CONSTIPATION
     Dosage: 10 MILLIGRAM, QD,
     Route: 048
     Dates: start: 20170602
  7. COMBIVENT [Concomitant]
     Active Substance: ALBUTEROL SULFATE\IPRATROPIUM BROMIDE
     Indication: BRONCHOSPASM
     Dosage: 2.5 MILLILITER, STRENGTH: 2.5+0.5 MG/CONTAINER, 2.5 ML INTERMITTENT
     Route: 055
     Dates: start: 20200329
  8. NORVASC [Concomitant]
     Active Substance: AMLODIPINE BESYLATE
     Indication: HYPERTENSION
     Dosage: 5 MILLIGRAM, QD,
     Route: 048
     Dates: start: 20180305
  9. BETNOVAT [Concomitant]
     Active Substance: BETAMETHASONE
     Indication: ECZEMA
     Dosage: 1 DOSAGE FORM, QD, 1 MG/G
     Route: 003
     Dates: start: 20171127
  10. METOCLOPRAMIDE. [Concomitant]
     Active Substance: METOCLOPRAMIDE
     Indication: NAUSEA
     Dosage: 10 MILLIGRAM,10.0MG INTERMITTENT
     Route: 048
     Dates: start: 20180302
  11. GABAPENTIN. [Concomitant]
     Active Substance: GABAPENTIN
     Indication: NEURALGIA
     Dosage: 300 MILLIGRAM, QD
     Route: 048
     Dates: start: 20180228
  12. PANODIL [Concomitant]
     Active Substance: ACETAMINOPHEN
     Indication: PAIN
     Dosage: UNK, DOSE: VARYING
     Route: 048
     Dates: start: 20180302
  13. OXYCONTIN [Concomitant]
     Active Substance: OXYCODONE HYDROCHLORIDE
     Indication: PAIN
     Dosage: 2 DOSAGE FORM, QD, STRENGTH 10MG TO MAR-2020 THEN 5MG
     Route: 048
     Dates: start: 20170602
  14. LOSARTAN POTASSIUM. [Suspect]
     Active Substance: LOSARTAN POTASSIUM
     Indication: HYPERTENSION
     Dosage: 100 MILLIGRAM, QD, 100 MG, 1X/DAY
     Route: 048
     Dates: start: 2009, end: 20200406
  15. LOSARTAN POTASSIUM. [Suspect]
     Active Substance: LOSARTAN POTASSIUM
     Dosage: 100 MILLIGRAM, QD, 100 MG, 1X/DAY
     Route: 048
     Dates: start: 20200408
  16. BALANCID NOVUM [Concomitant]
     Indication: GASTROOESOPHAGEAL REFLUX DISEASE
     Dosage: 1 DOSAGE FORM, 1 DF INTERMITTENT
     Route: 048
     Dates: start: 20200326
  17. OXYCODONE HYDROCHLORIDE. [Concomitant]
     Active Substance: OXYCODONE HYDROCHLORIDE
     Indication: PAIN
     Dosage: 5 MILLIGRAM, 5.0MG INTERMITTENT
     Route: 048
  18. CIRCADIN [Concomitant]
     Active Substance: MELATONIN
     Indication: INSOMNIA
     Dosage: 4 MILLIGRAM, QD, 4 MG, 1X/DAY
     Route: 048
     Dates: start: 20181114
  19. GANGIDEN [Concomitant]
     Indication: CONSTIPATION
     Dosage: 1 DOSAGE FORM, QD, STRENGTH: UNKNOWN
     Route: 048
     Dates: start: 20180325
  20. MOVICOL [Concomitant]
     Active Substance: POLYETHYLENE GLYCOL 3350\POTASSIUM CHLORIDE\SODIUM BICARBONATE\SODIUM CHLORIDE
     Indication: CONSTIPATION
     Dosage: 1 DOSAGE FORM, 1.0DF INTERMITTENT
     Route: 048
     Dates: start: 20170602
  21. FURIX [Concomitant]
     Indication: DIURETIC THERAPY
     Dosage: UNK, DOSE: 2 TABLETS MORNING AND 1 TABLET AT NOON
     Route: 048
     Dates: start: 20170603
  22. KALEORID [Concomitant]
     Active Substance: POTASSIUM CHLORIDE
     Indication: MINERAL SUPPLEMENTATION
     Dosage: 1500 MILLIGRAM, QD,STRENGTH: 750 MG
     Route: 048
     Dates: start: 20180222
  23. VENTOLINE (ALBUTEROL SULFATE) [Concomitant]
     Active Substance: ALBUTEROL SULFATE
     Indication: BRONCHOSPASM
     Dosage: 0.2 DOSAGE FORM, QD, STRENGTH: 0.1MG/DOSE, 0.2 DF DAILY
     Route: 055
     Dates: start: 20200407
  24. ATENOLOL. [Suspect]
     Active Substance: ATENOLOL
     Indication: HYPERTENSION
     Dosage: 50 MILLIGRAM, QD, 50 MG, 1X/DAY
     Route: 048
     Dates: start: 201709, end: 20200325
  25. VITAMIN D (UNSPECIFIED) [Concomitant]
     Active Substance: VITAMIN D NOS
     Indication: VITAMIN SUPPLEMENTATION
     Dosage: 25 MICROGRAM, QD, 25UG/INHAL DAILY
     Route: 048
     Dates: start: 20190826

REACTIONS (2)
  - Dizziness [Recovering/Resolving]
  - Fall [Unknown]

NARRATIVE: CASE EVENT DATE: 2017
